FAERS Safety Report 10253725 (Version 1)
Quarter: 2014Q2

REPORT INFORMATION
  Report Type: Spontaneous
  Country: JP (occurrence: JP)
  Receive Date: 20140623
  Receipt Date: 20140623
  Transmission Date: 20141212
  Serious: Yes (Hospitalization)
  Sender: FDA-Public Use
  Company Number: JP-ABBVIE-14P-087-1248098-00

PATIENT
  Age: 74 Year
  Sex: Male

DRUGS (3)
  1. HUMIRA [Suspect]
     Indication: COLITIS ULCERATIVE
     Route: 058
     Dates: start: 201401, end: 201401
  2. HUMIRA [Suspect]
  3. HUMIRA [Suspect]
     Dates: end: 201403

REACTIONS (6)
  - Dizziness [Recovered/Resolved]
  - Jaundice [Not Recovered/Not Resolved]
  - Dry skin [Recovering/Resolving]
  - Pyrexia [Not Recovered/Not Resolved]
  - Diarrhoea [Not Recovered/Not Resolved]
  - Cognitive disorder [Not Recovered/Not Resolved]
